FAERS Safety Report 8109309 (Version 4)
Quarter: 2013Q4

REPORT INFORMATION
  Report Type: Spontaneous
  Country: US (occurrence: US)
  Receive Date: 20110826
  Receipt Date: 20131126
  Transmission Date: 20140711
  Serious: Yes (Hospitalization)
  Sender: FDA-Public Use
  Company Number: US-BAYER-2011-075321

PATIENT
  Age: 32 Year
  Sex: Female
  Weight: 113.38 kg

DRUGS (9)
  1. YAZ [Suspect]
     Indication: CONTRACEPTION
     Dosage: UNK
     Route: 048
     Dates: start: 200806, end: 201006
  2. POTASSIUM [Concomitant]
     Dosage: UNK
     Dates: start: 200806
  3. MULTIVITAMIN [Concomitant]
     Dosage: UNK
     Route: 048
     Dates: start: 20090422
  4. CRANBERRY [Concomitant]
     Dosage: UNK
     Route: 048
     Dates: start: 20090422
  5. PAPAYA ENZYME [Concomitant]
     Dosage: UNK
     Route: 048
     Dates: start: 20090422
  6. PERCOCET [Concomitant]
     Dosage: UNK
     Route: 048
     Dates: start: 20090423
  7. LEVAQUIN [Concomitant]
     Dosage: UNK
     Route: 048
     Dates: start: 20090423
  8. IBUPROFEN [Concomitant]
  9. VICODIN [Concomitant]

REACTIONS (4)
  - Cholecystitis chronic [None]
  - Gallbladder injury [None]
  - Injury [Unknown]
  - Pain [Unknown]
